FAERS Safety Report 15685126 (Version 1)
Quarter: 2018Q4

REPORT INFORMATION
  Report Type: Spontaneous
  Country: US (occurrence: US)
  Receive Date: 20181204
  Receipt Date: 20181204
  Transmission Date: 20190205
  Serious: No
  Sender: FDA-Public Use
  Company Number: US-ANTARES PHARMA, INC.-2018-SPO-MX-0463

PATIENT
  Sex: Female

DRUGS (4)
  1. OTREXUP [Suspect]
     Active Substance: METHOTREXATE
     Indication: ARTHRALGIA
     Dosage: 10 MG/0.4ML, QWK
     Route: 058
  2. XELJANZ XR [Suspect]
     Active Substance: TOFACITINIB CITRATE
     Indication: PRODUCT USED FOR UNKNOWN INDICATION
     Dosage: 11 MG, QD
     Route: 048
  3. OTREXUP [Suspect]
     Active Substance: METHOTREXATE
     Dosage: 15 MG/0.4ML, QWK
     Route: 058
  4. METHOTREXATE. [Suspect]
     Active Substance: METHOTREXATE
     Indication: ARTHRALGIA
     Dosage: UNK

REACTIONS (6)
  - Diverticulitis [Unknown]
  - Rash [Unknown]
  - Dermatitis contact [Unknown]
  - Wrong dose [Unknown]
  - Liver function test increased [Unknown]
  - Nail ridging [Unknown]
